FAERS Safety Report 4783704-0 (Version None)
Quarter: 2005Q3

REPORT INFORMATION
  Report Type: 
  Country: None (occurrence: None)
  Receive Date: 20050927
  Receipt Date: 20050524
  Transmission Date: 20060218
  Serious: No
  Sender: FDA-Public Use
  Company Number: USA050599073

PATIENT
  Age: 12 Year
  Sex: Female

DRUGS (2)
  1. STRATTERA [Suspect]
     Dosage: 25 MG DAY
     Dates: start: 20040101
  2. RISPERDAL [Concomitant]

REACTIONS (2)
  - ASTHENIA [None]
  - PARAESTHESIA [None]
